FAERS Safety Report 9626939 (Version 2)
Quarter: 2013Q4

REPORT INFORMATION
  Report Type: Spontaneous
  Country: US (occurrence: DE)
  Receive Date: 20131016
  Receipt Date: 20131106
  Transmission Date: 20140711
  Serious: Yes (Other)
  Sender: FDA-Public Use
  Company Number: DE-PFIZER INC-2013292323

PATIENT
  Age: 26 Year
  Sex: Female

DRUGS (1)
  1. PHENYTOIN [Suspect]
     Indication: STATUS EPILEPTICUS
     Dosage: 250 MG, UNK
     Route: 042

REACTIONS (6)
  - Attention deficit/hyperactivity disorder [Recovered/Resolved]
  - Toxicity to various agents [Recovered/Resolved]
  - Dystonia [Recovered/Resolved]
  - Athetosis [Recovered/Resolved]
  - Psychotic disorder [Recovered/Resolved]
  - Depressed level of consciousness [Recovered/Resolved]
